FAERS Safety Report 8807830 (Version 3)
Quarter: 2012Q4

REPORT INFORMATION
  Report Type: 
  Country: US (occurrence: US)
  Receive Date: 20120925
  Receipt Date: 20121107
  Transmission Date: 20130627
  Serious: Yes (Hospitalization)
  Sender: FDA-Public Use
  Company Number: US-GLAXOSMITHKLINE-A0994023A

PATIENT
  Age: 79 Year
  Sex: Male

DRUGS (5)
  1. ADVAIR [Suspect]
     Indication: DYSPNOEA
     Dosage: 1PUFF Twice per day
     Route: 055
     Dates: start: 20110722
  2. NEBULIZER [Concomitant]
  3. COUMADIN [Concomitant]
  4. MULTIPLE VITAMIN [Concomitant]
  5. VITAMIN D [Concomitant]

REACTIONS (2)
  - Dyspnoea [Recovered/Resolved]
  - Lung disorder [Recovered/Resolved]
